FAERS Safety Report 4798852-9 (Version None)
Quarter: 2005Q4

REPORT INFORMATION
  Report Type: 
  Country: None (occurrence: None)
  Receive Date: 20051014
  Receipt Date: 20050929
  Transmission Date: 20060501
  Serious: Yes (Hospitalization, Other)
  Sender: FDA-Public Use
  Company Number: 2005-08-0281

PATIENT
  Age: 52 Year
  Sex: Female
  Weight: 70 kg

DRUGS (3)
  1. COMPAZINE [Suspect]
     Indication: PROPHYLAXIS
     Route: 048
     Dates: start: 20050706, end: 20050803
  2. TEMODAR [Suspect]
     Indication: GLIOBLASTOMA MULTIFORME
     Route: 048
  3. RADIATION THERAPY [Concomitant]

REACTIONS (9)
  - COORDINATION ABNORMAL [None]
  - DIFFICULTY IN WALKING [None]
  - DYSTONIA [None]
  - GAIT DISTURBANCE [None]
  - INSOMNIA [None]
  - MOOD ALTERED [None]
  - MUSCLE RIGIDITY [None]
  - MUSCULOSKELETAL STIFFNESS [None]
  - PARKINSONISM [None]
